FAERS Safety Report 5141813-0 (Version None)
Quarter: 2006Q4

REPORT INFORMATION
  Report Type: 
  Country: None (occurrence: None)
  Receive Date: 20061027
  Receipt Date: 20061016
  Transmission Date: 20070319
  Serious: Yes (Hospitalization)
  Sender: FDA-Public Use
  Company Number: 2006096138

PATIENT
  Age: 40 Year
  Sex: Female

DRUGS (6)
  1. LIPITOR [Suspect]
     Indication: HYPERLIPIDAEMIA
     Dosage: 20 MG (10 MG, 2 IN 1 D), ORAL
     Route: 048
     Dates: start: 20060617, end: 20060710
  2. BEZATOL (BEZAFIBRATE) [Suspect]
     Indication: HYPERLIPIDAEMIA
     Dosage: 400 MG (200 MG, 2 IN 1 D), ORAL
     Route: 048
     Dates: start: 20060619, end: 20060710
  3. LEVOTHYROXINE SODIUM [Concomitant]
  4. METHYCOBAL (MECOBALAMIN) [Concomitant]
  5. NOVOLIN R [Concomitant]
  6. NOVOLIN N [Concomitant]

REACTIONS (5)
  - AUTOIMMUNE HEPATITIS [None]
  - COMA HEPATIC [None]
  - HAEMODIALYSIS [None]
  - HEPATIC ENCEPHALOPATHY [None]
  - HEPATITIS FULMINANT [None]
